FAERS Safety Report 23689945 (Version 1)
Quarter: 2024Q2

REPORT INFORMATION
  Report Type: Other
  Country: KZ (occurrence: KZ)
  Receive Date: 20240401
  Receipt Date: 20240401
  Transmission Date: 20240716
  Serious: Yes (Other)
  Sender: FDA-Public Use
  Company Number: KZ-MACLEODS PHARMA EU LTD-MAC2024046540

PATIENT

DRUGS (2)
  1. PYRAZINAMIDE [Suspect]
     Active Substance: PYRAZINAMIDE
     Indication: Pulmonary tuberculosis
     Dosage: 500 MILLIGRAM (SERIES: YERV821007A/01.09.2025, RK-LS-5 NO. 024322)
     Route: 065
     Dates: start: 20240115, end: 20240122
  2. RIFAMPIN [Suspect]
     Active Substance: RIFAMPIN
     Indication: Pulmonary tuberculosis
     Dosage: UNK (SERIES: 230402/31. 03. 2025)
     Route: 065
     Dates: start: 20240115, end: 20240122

REACTIONS (1)
  - Hyperbilirubinaemia [Recovering/Resolving]
